FAERS Safety Report 20797652 (Version 3)
Quarter: 2022Q2

REPORT INFORMATION
  Report Type: Spontaneous
  Country: US (occurrence: US)
  Receive Date: 20220506
  Receipt Date: 20220623
  Transmission Date: 20220721
  Serious: No
  Sender: FDA-Public Use
  Company Number: US-PFIZER INC-2021481953

PATIENT
  Age: 60 Year
  Sex: Male

DRUGS (2)
  1. INLYTA [Suspect]
     Active Substance: AXITINIB
     Dosage: 1 MG
     Dates: start: 20201202
  2. INLYTA [Suspect]
     Active Substance: AXITINIB
     Dosage: 4 TABLETS TWICE DAILY, CYCLIC (7 DAYS, OFF THREE DAYS)
     Dates: end: 20220618

REACTIONS (7)
  - Hypertension [Unknown]
  - Stomatitis [Unknown]
  - Fatigue [Unknown]
  - Skin exfoliation [Unknown]
  - Dysphonia [Unknown]
  - Skin lesion [Unknown]
  - Neoplasm progression [Unknown]
